FAERS Safety Report 9805643 (Version 1)
Quarter: 2014Q1

REPORT INFORMATION
  Report Type: Spontaneous
  Country: US (occurrence: None)
  Receive Date: 20140108
  Receipt Date: 20140108
  Transmission Date: 20141002
  Serious: Yes (Hospitalization)
  Sender: FDA-Public Use
  Company Number: None

PATIENT
  Sex: 0

DRUGS (1)
  1. DEXTROMETHORPHAN/GUAIFENESIN [Suspect]
     Dates: start: 20140101, end: 20140101

REACTIONS (16)
  - Overdose [None]
  - Vision blurred [None]
  - Confusional state [None]
  - Dizziness [None]
  - Sedation [None]
  - Hyperhidrosis [None]
  - Mydriasis [None]
  - Ocular hyperaemia [None]
  - Lacrimation increased [None]
  - Slow response to stimuli [None]
  - Dysarthria [None]
  - Dysstasia [None]
  - Gait disturbance [None]
  - Pupillary reflex impaired [None]
  - Restlessness [None]
  - Blood pressure increased [None]
